FAERS Safety Report 5050092-4 (Version None)
Quarter: 2006Q3

REPORT INFORMATION
  Report Type: 
  Country: None (occurrence: None)
  Receive Date: 20060706
  Receipt Date: 20060623
  Transmission Date: 20061208
  Serious: Yes (Hospitalization, Other)
  Sender: FDA-Public Use
  Company Number: PAR_0681_2006

PATIENT
  Sex: Female

DRUGS (1)
  1. MEGACE ES [Suspect]
     Dosage: DF PO
     Route: 048

REACTIONS (3)
  - DEMENTIA [None]
  - MENTAL STATUS CHANGES [None]
  - PHYSICAL ASSAULT [None]
